FAERS Safety Report 9818987 (Version 2)
Quarter: 2014Q1

REPORT INFORMATION
  Report Type: Spontaneous
  Country: US (occurrence: None)
  Receive Date: 20131223
  Receipt Date: 20140228
  Transmission Date: 20141002
  Serious: Yes (Other)
  Sender: FDA-Public Use
  Company Number: 221361

PATIENT
  Age: 55 Year
  Sex: Female

DRUGS (1)
  1. PICATO GEL [Suspect]
     Indication: ACTINIC KERATOSIS
     Route: 061
     Dates: start: 20130414, end: 20130414

REACTIONS (7)
  - Lip oedema [None]
  - Application site pain [None]
  - Application site vesicles [None]
  - Eye oedema [None]
  - Skin disorder [None]
  - Application site dryness [None]
  - Incorrect drug administration duration [None]
